FAERS Safety Report 8564860-5 (Version None)
Quarter: 2012Q3

REPORT INFORMATION
  Report Type: 
  Country: None (occurrence: None)
  Receive Date: 20120803
  Receipt Date: 20120412
  Transmission Date: 20120928
  Serious: No
  Sender: FDA-Public Use
  Company Number: US-GLAXOSMITHKLINE-A0973403A

PATIENT
  Age: 74 Year
  Sex: Female

DRUGS (7)
  1. CYMBALTA [Concomitant]
  2. TRAZODONE HYDROCHLORIDE [Concomitant]
  3. FENTANYL [Concomitant]
  4. HORIZANT [Suspect]
     Indication: NERVOUS SYSTEM DISORDER
     Dosage: 600MG PER DAY
     Route: 048
     Dates: start: 20120404
  5. TOPROL-XL [Concomitant]
  6. WARFARIN SODIUM [Concomitant]
  7. PERCOCET [Concomitant]

REACTIONS (10)
  - CHILLS [None]
  - DEPRESSION [None]
  - ANXIETY [None]
  - IRRITABILITY [None]
  - RESTLESSNESS [None]
  - NAUSEA [None]
  - SOMNOLENCE [None]
  - HYPERHIDROSIS [None]
  - AGITATION [None]
  - INSOMNIA [None]
